FAERS Safety Report 6505604-8 (Version None)
Quarter: 2009Q4

REPORT INFORMATION
  Report Type: 
  Country: None (occurrence: None)
  Receive Date: 20091218
  Receipt Date: 20091208
  Transmission Date: 20100525
  Serious: Yes (Hospitalization)
  Sender: FDA-Public Use
  Company Number: JP-PFIZER INC-2009302881

PATIENT
  Age: 76 Year
  Sex: Male

DRUGS (4)
  1. MIGLITOL [Suspect]
     Indication: DIABETES MELLITUS
     Dosage: UNK
     Route: 048
     Dates: start: 20090724, end: 20090916
  2. STRONG NEO-MINOPHAGEN C [Concomitant]
     Dosage: 40 ML, UNK
     Route: 042
  3. OMEPRAL [Concomitant]
     Dosage: 20 MG, UNK
     Route: 048
  4. INSULIN HUMAN [Concomitant]
     Route: 058

REACTIONS (4)
  - ABDOMINAL DISTENSION [None]
  - ABDOMINAL PAIN [None]
  - NAUSEA [None]
  - SUBILEUS [None]
